FAERS Safety Report 18288769 (Version 9)
Quarter: 2021Q1

REPORT INFORMATION
  Report Type: Spontaneous
  Country: US (occurrence: US)
  Receive Date: 20200921
  Receipt Date: 20210108
  Transmission Date: 20210419
  Serious: Yes (Hospitalization, Other)
  Sender: FDA-Public Use
  Company Number: US-HIKMA PHARMACEUTICALS USA INC.-US-H14001-20-04312

PATIENT
  Sex: Female

DRUGS (7)
  1. INFUMORPH [Suspect]
     Active Substance: MORPHINE SULFATE
     Indication: SPINAL PAIN
     Route: 037
  2. FENTANYL. [Concomitant]
     Active Substance: FENTANYL
     Indication: PRODUCT USED FOR UNKNOWN INDICATION
     Route: 037
  3. FENTANYL. [Concomitant]
     Active Substance: FENTANYL
     Route: 037
  4. INFUMORPH [Suspect]
     Active Substance: MORPHINE SULFATE
     Route: 037
  5. INFUMORPH [Suspect]
     Active Substance: MORPHINE SULFATE
     Route: 037
  6. BUPIVACAINE. [Concomitant]
     Active Substance: BUPIVACAINE
     Indication: PRODUCT USED FOR UNKNOWN INDICATION
     Route: 037
  7. BUPIVACAINE. [Concomitant]
     Active Substance: BUPIVACAINE
     Route: 037

REACTIONS (3)
  - Infusion site cellulitis [Recovered/Resolved with Sequelae]
  - Decubitus ulcer [Recovered/Resolved with Sequelae]
  - Underdose [Unknown]
